FAERS Safety Report 8350778-X (Version None)
Quarter: 2012Q2

REPORT INFORMATION
  Report Type: 
  Country: None (occurrence: None)
  Receive Date: 20120510
  Receipt Date: 20120426
  Transmission Date: 20120825
  Serious: Yes (Hospitalization)
  Sender: FDA-Public Use
  Company Number: IT-GLAXOSMITHKLINE-B0780533A

PATIENT
  Sex: Female

DRUGS (10)
  1. FLUVOXAMINE MALEATE [Suspect]
     Indication: DEPRESSION
     Dosage: 50MG PER DAY
     Route: 048
     Dates: start: 19970411
  2. FLUTICASONE FUROATE [Concomitant]
     Dosage: 1PUFF PER DAY
     Route: 055
  3. FLUVOXAMINE MALEATE [Concomitant]
     Route: 048
  4. EBASTINE [Concomitant]
     Route: 048
  5. SYMBICORT [Suspect]
     Indication: ASTHMA EXERCISE INDUCED
     Dosage: 2PUFF PER DAY
     Route: 055
     Dates: start: 20101222
  6. LORAZEPAM [Concomitant]
     Dosage: 2.5MG PER DAY
     Route: 048
  7. VENTOLIN [Suspect]
     Indication: ASTHMA EXERCISE INDUCED
     Dosage: 2PUFF PER DAY
     Route: 055
     Dates: start: 20101222
  8. CALCIUM [Concomitant]
     Route: 048
  9. COLECALCIFEROL [Concomitant]
     Route: 048
  10. CLODRONATE DISODIUM [Concomitant]

REACTIONS (3)
  - HEAD INJURY [None]
  - SUBARACHNOID HAEMORRHAGE [None]
  - SYNCOPE [None]
